FAERS Safety Report 17241113 (Version 2)
Quarter: 2020Q2

REPORT INFORMATION
  Report Type: Report from Study
  Country: ES (occurrence: ES)
  Receive Date: 20200107
  Receipt Date: 20200526
  Transmission Date: 20200713
  Serious: Yes (Hospitalization)
  Sender: FDA-Public Use
  Company Number: ES-ACCORD-169013

PATIENT
  Age: 91 Year
  Sex: Female

DRUGS (7)
  1. LISINOPRIL. [Suspect]
     Active Substance: LISINOPRIL
     Indication: HYPERTENSION
     Dosage: STRENGTH: 20 MG; 28 TABLETS; 1-0-0
     Route: 048
     Dates: start: 2010, end: 20190905
  2. EFFERALGAN [Concomitant]
     Active Substance: ACETAMINOPHEN
     Dosage: STRENGTH: 1 G; 40 TABLETS
     Route: 048
  3. ULCERAL [Concomitant]
     Dosage: STRENGTH: 40 MG
     Route: 048
  4. TORASEMIDE [Interacting]
     Active Substance: TORSEMIDE
     Indication: HYPERTENSION
     Dosage: VARIABLE DOSE
     Route: 048
     Dates: start: 2009, end: 20190905
  5. LORAZEPAM. [Concomitant]
     Active Substance: LORAZEPAM
     Dosage: STRENGTH: 5 MG; 20 TABLETS
     Route: 048
  6. ACTONEL [Concomitant]
     Active Substance: RISEDRONATE SODIUM
     Dosage: STRENGTH: 35 MG; 4 TABLETS
     Route: 048
  7. DILIBAN [Concomitant]
     Active Substance: ACETAMINOPHEN\TRAMADOL HYDROCHLORIDE
     Dosage: STRENGTH-75 MG / 650 MG , 60 TABLETS (BLISTER)
     Route: 048

REACTIONS (2)
  - Acute kidney injury [Recovered/Resolved]
  - Drug interaction [Unknown]

NARRATIVE: CASE EVENT DATE: 20190905
